FAERS Safety Report 4427936-X (Version None)
Quarter: 2004Q3

REPORT INFORMATION
  Report Type: 
  Country: None (occurrence: None)
  Receive Date: 20040813
  Receipt Date: 20040802
  Transmission Date: 20050211
  Serious: Yes (Other)
  Sender: FDA-Public Use
  Company Number: 2004-119109-NL

PATIENT
  Age: 31 Year
  Sex: Female
  Weight: 53 kg

DRUGS (4)
  1. NUVARING [Suspect]
     Indication: CONTRACEPTION
     Dosage: VAGINAL, 3 WEEKS IN/1 WEEK OUT
     Dates: start: 20040301, end: 20040615
  2. NUVARING [Suspect]
     Indication: CONTRACEPTION
     Dosage: VAGINAL, CONTINUES X2, 3-WK CYCLES
     Dates: start: 20040615, end: 20040726
  3. WOMANS MULTI-VITAMIN [Concomitant]
  4. MOTRIN [Concomitant]

REACTIONS (14)
  - BACK PAIN [None]
  - DIZZINESS [None]
  - EAR INFECTION [None]
  - FEMALE SEXUAL DYSFUNCTION [None]
  - FLANK PAIN [None]
  - INFLAMMATION [None]
  - LIVER DISORDER [None]
  - MEDICAL DEVICE COMPLICATION [None]
  - METRORRHAGIA [None]
  - PAIN IN EXTREMITY [None]
  - PELVIC INFLAMMATORY DISEASE [None]
  - TREATMENT NONCOMPLIANCE [None]
  - VAGINAL HAEMORRHAGE [None]
  - VAGINITIS [None]
